FAERS Safety Report 12345374 (Version 3)
Quarter: 2016Q2

REPORT INFORMATION
  Report Type: Report from Study
  Country: US (occurrence: US)
  Receive Date: 20160508
  Receipt Date: 20160518
  Transmission Date: 20160815
  Serious: Yes (Hospitalization)
  Sender: FDA-Public Use
  Company Number: US-HORIZON-HPN-100-014-0020-2016

PATIENT
  Age: 21 Year
  Sex: Female

DRUGS (3)
  1. L-ARGININE [Concomitant]
     Active Substance: ARGININE
  2. SODIUM PHENYLBUTYRATE. [Suspect]
     Active Substance: SODIUM PHENYLBUTYRATE
     Indication: UREA CYCLE ENZYME DEFICIENCY
     Dosage: 6.2 G
     Dates: start: 2006
  3. CYCLINEX-2 [Concomitant]
     Indication: UREA CYCLE ENZYME DEFICIENCY
     Dosage: 140 G DAILY
     Dates: start: 20140729

REACTIONS (1)
  - Hyperammonaemic crisis [Recovered/Resolved]

NARRATIVE: CASE EVENT DATE: 20160429
